FAERS Safety Report 23599509 (Version 1)
Quarter: 2024Q1

REPORT INFORMATION
  Report Type: Report from Study
  Country: ES (occurrence: ES)
  Receive Date: 20240306
  Receipt Date: 20240306
  Transmission Date: 20240409
  Serious: Yes (Other)
  Sender: FDA-Public Use
  Company Number: None

PATIENT
  Age: 31 Year
  Sex: Female
  Weight: 54 kg

DRUGS (1)
  1. PAROXETINE [Suspect]
     Active Substance: PAROXETINE
     Indication: Depression
     Dosage: PAROXETINA (2586A)
     Route: 048
     Dates: start: 20230503

REACTIONS (3)
  - Libido decreased [Unknown]
  - Confusional state [Unknown]
  - Dry mouth [Unknown]

NARRATIVE: CASE EVENT DATE: 20230503
